FAERS Safety Report 8258021-7 (Version None)
Quarter: 2012Q1

REPORT INFORMATION
  Report Type: 
  Country: None (occurrence: None)
  Receive Date: 20120322
  Receipt Date: 20111212
  Transmission Date: 20120608
  Serious: Yes (Hospitalization)
  Sender: FDA-Public Use
  Company Number: UTC-013329

PATIENT
  Age: 58 Year
  Sex: Female
  Weight: 60.9 kg

DRUGS (3)
  1. TYVASO [Suspect]
     Indication: PULMONARY ARTERIAL HYPERTENSION
     Dosage: 168 MCG (42 MCG,4 IN 1 D),INHALATION
     Route: 055
     Dates: start: 20091221
  2. DIURETICS (DIURETICS) [Concomitant]
  3. TRACLEER [Concomitant]

REACTIONS (2)
  - DYSPNOEA [None]
  - WHEEZING [None]
